FAERS Safety Report 10680185 (Version 3)
Quarter: 2015Q1

REPORT INFORMATION
  Report Type: Spontaneous
  Country: JP (occurrence: JP)
  Receive Date: 20141229
  Receipt Date: 20150310
  Transmission Date: 20150720
  Serious: Yes (Hospitalization, Other)
  Sender: FDA-Public Use
  Company Number: JP-ROCHE-1514155

PATIENT
  Age: 77 Year
  Sex: Male

DRUGS (15)
  1. METHYCOBAL [Concomitant]
     Active Substance: METHYLCOBALAMIN
  2. FERROMIA [Concomitant]
     Active Substance: FERROUS CITRATE
  3. PRAVASTATIN NATRIUM [Concomitant]
  4. DOXAZOSIN MESILATE [Concomitant]
     Active Substance: DOXAZOSIN MESYLATE
  5. LUCENTIS [Suspect]
     Active Substance: RANIBIZUMAB
     Route: 050
     Dates: start: 20141212
  6. NITRODERM [Concomitant]
     Active Substance: NITROGLYCERIN
     Route: 065
  7. METFORMIN HYDROCHLORIDE. [Concomitant]
     Active Substance: METFORMIN HYDROCHLORIDE
  8. LUCENTIS [Suspect]
     Active Substance: RANIBIZUMAB
     Route: 050
     Dates: start: 20140627
  9. NIFEDIPINE LA [Concomitant]
  10. PLAVIX [Concomitant]
     Active Substance: CLOPIDOGREL BISULFATE
  11. LUCENTIS [Suspect]
     Active Substance: RANIBIZUMAB
     Indication: RETINAL VEIN OCCLUSION
     Route: 050
     Dates: start: 201409
  12. AZILVA [Concomitant]
     Active Substance: AZILSARTAN KAMEDOXOMIL
  13. CARVEDILOL. [Concomitant]
     Active Substance: CARVEDILOL
  14. NESINA [Concomitant]
     Active Substance: ALOGLIPTIN BENZOATE
  15. KINEDAK [Concomitant]
     Active Substance: EPALRESTAT

REACTIONS (4)
  - Macular oedema [Recovering/Resolving]
  - Eyelid oedema [Recovering/Resolving]
  - Malaise [Unknown]
  - Cardiac failure [Recovering/Resolving]

NARRATIVE: CASE EVENT DATE: 201409
